FAERS Safety Report 7466469-3 (Version None)
Quarter: 2011Q2

REPORT INFORMATION
  Report Type: 
  Country: None (occurrence: None)
  Receive Date: 20110509
  Receipt Date: 20100817
  Transmission Date: 20111010
  Serious: No
  Sender: FDA-Public Use
  Company Number: US-ALEXION-A201001022

PATIENT
  Sex: Female

DRUGS (3)
  1. SOLIRIS [Suspect]
     Dosage: 900 MG, Q2W
     Route: 042
     Dates: start: 20100818
  2. SOLIRIS [Suspect]
     Indication: PAROXYSMAL NOCTURNAL HAEMOGLOBINURIA
     Dosage: 600 MG, QW
     Route: 042
     Dates: start: 20100721, end: 20100818
  3. COUMADIN [Concomitant]
     Dosage: 10 MG, QD
     Route: 048

REACTIONS (5)
  - SLEEP DISORDER [None]
  - UPPER RESPIRATORY TRACT INFECTION [None]
  - SOMNOLENCE [None]
  - FATIGUE [None]
  - FEELING ABNORMAL [None]
